FAERS Safety Report 4907853-9 (Version None)
Quarter: 2006Q1

REPORT INFORMATION
  Report Type: 
  Country: None (occurrence: None)
  Receive Date: 20060210
  Receipt Date: 20060202
  Transmission Date: 20060701
  Serious: Yes (Hospitalization)
  Sender: FDA-Public Use
  Company Number: CA-AVENTIS-200611099GDDC

PATIENT
  Age: 82 Year
  Sex: Male

DRUGS (2)
  1. FLAGYL [Suspect]
     Indication: PNEUMOCYSTIS JIROVECI INFECTION
     Route: 048
     Dates: start: 20060125
  2. PRIMAQUINE [Suspect]
     Indication: PNEUMOCYSTIS JIROVECI INFECTION
     Route: 048
     Dates: start: 20060123

REACTIONS (2)
  - MUTISM [None]
  - PSYCHOMOTOR RETARDATION [None]
